FAERS Safety Report 10260056 (Version 1)
Quarter: 2014Q2

REPORT INFORMATION
  Report Type: Spontaneous
  Country: US (occurrence: US)
  Receive Date: 20140625
  Receipt Date: 20140625
  Transmission Date: 20141212
  Serious: Yes (Hospitalization, Other)
  Sender: FDA-Public Use
  Company Number: US-BAXTER-2014BAX033522

PATIENT
  Sex: Male

DRUGS (2)
  1. DIANEAL LOW CALCIUM [Suspect]
     Indication: PERITONEAL DIALYSIS
     Route: 033
  2. DIANEAL LOW CALCIUM [Suspect]
     Indication: PERITONEAL DIALYSIS
     Route: 033

REACTIONS (6)
  - Disorientation [Recovering/Resolving]
  - Wound [Recovering/Resolving]
  - Blood glucose decreased [Unknown]
  - Gastric ulcer haemorrhage [Unknown]
  - Dyspnoea exertional [Unknown]
  - Dizziness [Recovering/Resolving]
